FAERS Safety Report 8376060-2 (Version None)
Quarter: 2012Q2

REPORT INFORMATION
  Report Type: 
  Country: None (occurrence: None)
  Receive Date: 20120522
  Receipt Date: 20120517
  Transmission Date: 20120825
  Serious: Yes (Other)
  Sender: FDA-Public Use
  Company Number: PHHY2012BR042583

PATIENT
  Sex: Female

DRUGS (1)
  1. HYDERGINE [Suspect]

REACTIONS (1)
  - DEMENTIA ALZHEIMER'S TYPE [None]
